FAERS Safety Report 22188125 (Version 2)
Quarter: 2023Q2

REPORT INFORMATION
  Report Type: Spontaneous
  Country: FR (occurrence: FR)
  Receive Date: 20230408
  Receipt Date: 20230515
  Transmission Date: 20230721
  Serious: Yes (Death, Other)
  Sender: FDA-Public Use
  Company Number: FR-INCYTE CORPORATION-2023IN002960

PATIENT

DRUGS (3)
  1. TAFASITAMAB [Suspect]
     Active Substance: TAFASITAMAB
     Indication: Diffuse large B-cell lymphoma
     Dosage: 12 MILLIGRAM/KILOGRAM
     Route: 065
     Dates: end: 20230313
  2. KARDEGIC [Concomitant]
     Active Substance: ASPIRIN DL-LYSINE
     Indication: Cerebrovascular accident
     Dosage: UNK
     Route: 065
     Dates: start: 20220701
  3. LEVOTHYROXINE [Concomitant]
     Active Substance: LEVOTHYROXINE
     Indication: Hypothyroidism
     Dosage: UNK
     Route: 065
     Dates: start: 20221001

REACTIONS (2)
  - Diffuse large B-cell lymphoma [Fatal]
  - Disease progression [Fatal]
